FAERS Safety Report 6278539-6 (Version None)
Quarter: 2009Q3

REPORT INFORMATION
  Report Type: 
  Country: None (occurrence: None)
  Receive Date: 20090722
  Receipt Date: 20080722
  Transmission Date: 20100115
  Serious: No
  Sender: FDA-Public Use
  Company Number: US-BAUSCH-2008BL003191

PATIENT
  Age: 82 Year
  Sex: Male

DRUGS (6)
  1. OPCON-A [Suspect]
     Indication: EYE PRURITUS
     Route: 047
     Dates: start: 20080718, end: 20080718
  2. OPCON-A [Suspect]
     Route: 047
     Dates: start: 20080720, end: 20080721
  3. LOVAZA [Concomitant]
  4. ASCORBIC ACID [Concomitant]
  5. GLUCOSAMINE W/CHONDROITIN [Concomitant]
     Indication: ARTHRITIS
  6. MULTI-VITAMINS [Concomitant]

REACTIONS (1)
  - EYE IRRITATION [None]
